FAERS Safety Report 14075258 (Version 2)
Quarter: 2017Q4

REPORT INFORMATION
  Report Type: Spontaneous
  Country: US (occurrence: US)
  Receive Date: 20171010
  Receipt Date: 20171010
  Transmission Date: 20180321
  Serious: Yes (Hospitalization, Other)
  Sender: FDA-Public Use
  Company Number: US-ABBVIE-17P-163-2120487-00

PATIENT
  Age: 76 Year
  Sex: Female
  Weight: 59.02 kg

DRUGS (10)
  1. SYNTHROID [Suspect]
     Active Substance: LEVOTHYROXINE SODIUM
     Indication: PRODUCT USED FOR UNKNOWN INDICATION
     Route: 048
     Dates: start: 201111, end: 2012
  2. TRUSOPT [Suspect]
     Active Substance: DORZOLAMIDE HYDROCHLORIDE
     Indication: PRODUCT USED FOR UNKNOWN INDICATION
     Route: 031
  3. PROPOFOL. [Concomitant]
     Active Substance: PROPOFOL
     Indication: PRODUCT USED FOR UNKNOWN INDICATION
     Route: 065
  4. TIMOLOL. [Suspect]
     Active Substance: TIMOLOL
     Indication: PRODUCT USED FOR UNKNOWN INDICATION
     Route: 031
  5. DIOVAN [Suspect]
     Active Substance: VALSARTAN
     Indication: PRODUCT USED FOR UNKNOWN INDICATION
     Route: 065
  6. LEVOTHYROXINE. [Suspect]
     Active Substance: LEVOTHYROXINE
     Indication: THYROID DISORDER
     Route: 048
     Dates: start: 2012
  7. AMLODIPINE [Suspect]
     Active Substance: AMLODIPINE BESYLATE
     Indication: PRODUCT USED FOR UNKNOWN INDICATION
     Route: 065
  8. LOSARTAN. [Suspect]
     Active Substance: LOSARTAN
     Indication: PRODUCT USED FOR UNKNOWN INDICATION
     Route: 065
  9. FUROSEMIDE. [Concomitant]
     Active Substance: FUROSEMIDE
     Indication: PRODUCT USED FOR UNKNOWN INDICATION
     Route: 065
  10. XALATAN [Suspect]
     Active Substance: LATANOPROST
     Indication: GLAUCOMA
     Dosage: 0.005% ONE DROP IN EACH EYE ONCE IN THE EVENING
     Route: 031

REACTIONS (26)
  - Gastrointestinal surgery [Recovered/Resolved]
  - Tooth disorder [Unknown]
  - Malaise [Recovered/Resolved]
  - Vocal cord dysfunction [Not Recovered/Not Resolved]
  - Arthritis [Recovered/Resolved]
  - Intraocular pressure increased [Unknown]
  - Inflammation [Unknown]
  - Visual impairment [Recovered/Resolved]
  - Alopecia [Unknown]
  - Chronic obstructive pulmonary disease [Unknown]
  - Dyspnoea [Unknown]
  - Product quality issue [Unknown]
  - Paraesthesia [Unknown]
  - Tooth infection [Not Recovered/Not Resolved]
  - Incoherent [Recovered/Resolved]
  - Mental impairment [Recovered/Resolved]
  - Gastrointestinal surgery [Recovered/Resolved]
  - Hair growth abnormal [Recovered/Resolved]
  - Skin haemorrhage [Unknown]
  - Neuroendocrine carcinoma [Unknown]
  - Paralysis [Recovered/Resolved]
  - Speech disorder [Recovered/Resolved]
  - Gastrointestinal surgery [Recovered/Resolved]
  - Tooth infection [Recovered/Resolved]
  - Body height decreased [Not Recovered/Not Resolved]
  - Adverse reaction [Unknown]

NARRATIVE: CASE EVENT DATE: 2011
